FAERS Safety Report 6303814-6 (Version None)
Quarter: 2009Q3

REPORT INFORMATION
  Report Type: 
  Country: None (occurrence: None)
  Receive Date: 20090807
  Receipt Date: 20090807
  Transmission Date: 20100115
  Serious: Yes (Life-Threatening, Other)
  Sender: FDA-Public Use
  Company Number: None

PATIENT
  Sex: Male
  Weight: 109.1 kg

DRUGS (1)
  1. CARVEDILOL [Suspect]
     Indication: CARDIAC DISORDER
     Dosage: 6.5 MG TWICE DAILY 047
     Dates: start: 20090711, end: 20090720

REACTIONS (2)
  - BLOOD PRESSURE DECREASED [None]
  - PRODUCT SUBSTITUTION ISSUE [None]
